FAERS Safety Report 6786125-4 (Version None)
Quarter: 2010Q2

REPORT INFORMATION
  Report Type: 
  Country: None (occurrence: None)
  Receive Date: 20100623
  Receipt Date: 20100618
  Transmission Date: 20101027
  Serious: Yes (Other)
  Sender: FDA-Public Use
  Company Number: DE-SANOFI-AVENTIS-2010SA035147

PATIENT
  Age: 15 Year
  Sex: Female

DRUGS (2)
  1. TELFAST [Suspect]
     Route: 048
  2. VIANI [Concomitant]
     Indication: ASTHMA
     Route: 048

REACTIONS (3)
  - HYPERVENTILATION [None]
  - OFF LABEL USE [None]
  - TREMOR [None]
